FAERS Safety Report 7804994-3 (Version None)
Quarter: 2011Q4

REPORT INFORMATION
  Report Type: 
  Country: None (occurrence: None)
  Receive Date: 20111010
  Receipt Date: 20111007
  Transmission Date: 20120403
  Serious: Yes (Hospitalization)
  Sender: FDA-Public Use
  Company Number: US-GLAXOSMITHKLINE-A0776272A

PATIENT
  Age: 72 Year
  Sex: Female
  Weight: 70.5 kg

DRUGS (13)
  1. LIPITOR [Concomitant]
  2. OMEPRAZOLE [Concomitant]
  3. GLIMEPIRIDE [Concomitant]
  4. AVANDIA [Suspect]
     Indication: DIABETES MELLITUS
     Route: 048
     Dates: end: 20030101
  5. LISINOPRIL [Concomitant]
  6. AVANDAMET [Suspect]
     Indication: TYPE 2 DIABETES MELLITUS
     Dosage: 4MG TWICE PER DAY
     Dates: start: 20061101, end: 20070901
  7. AMARYL [Concomitant]
  8. GLYBURIDE [Concomitant]
  9. ZOCOR [Concomitant]
  10. METFORMIN HYDROCHLORIDE [Concomitant]
  11. ACTOS [Concomitant]
  12. ASPIRIN [Concomitant]
  13. PLAVIX [Concomitant]

REACTIONS (2)
  - CEREBROVASCULAR ACCIDENT [None]
  - MOTOR DYSFUNCTION [None]
